FAERS Safety Report 7227423-X (Version None)
Quarter: 2011Q1

REPORT INFORMATION
  Report Type: 
  Country: None (occurrence: None)
  Receive Date: 20110114
  Receipt Date: 20110112
  Transmission Date: 20110831
  Serious: Yes (Hospitalization, Other)
  Sender: FDA-Public Use
  Company Number: US-PFIZER INC-2011008567

PATIENT
  Sex: Male
  Weight: 77.098 kg

DRUGS (2)
  1. GEODON [Suspect]
     Indication: DEPRESSION
     Dosage: 20 MG, 2X/DAY
     Route: 048
     Dates: start: 20060401, end: 20060101
  2. GEODON [Suspect]
     Indication: AFFECTIVE DISORDER

REACTIONS (16)
  - PALPITATIONS [None]
  - STRESS [None]
  - RESTLESSNESS [None]
  - SUICIDE ATTEMPT [None]
  - SUICIDAL IDEATION [None]
  - FEELING ABNORMAL [None]
  - DRUG WITHDRAWAL SYNDROME [None]
  - PARANOIA [None]
  - WEIGHT INCREASED [None]
  - ANXIETY [None]
  - DEPRESSION [None]
  - MENTAL DISORDER [None]
  - FEAR [None]
  - MOOD ALTERED [None]
  - AGITATION [None]
  - CHEST DISCOMFORT [None]
